FAERS Safety Report 5542549-4 (Version None)
Quarter: 2007Q4

REPORT INFORMATION
  Report Type: 
  Country: None (occurrence: None)
  Receive Date: 20071120
  Receipt Date: 20070419
  Transmission Date: 20080405
  Serious: Yes (Hospitalization)
  Sender: FDA-Public Use
  Company Number: 36187

PATIENT
  Age: 5 Year
  Sex: Male

DRUGS (1)
  1. METHOTREXATE [Suspect]
     Dosage: 12.5ML/SUBCUTANEOUSLY/ONCE A
     Route: 058
     Dates: start: 20060319

REACTIONS (1)
  - INJECTION SITE REACTION [None]
